FAERS Safety Report 10538972 (Version 1)
Quarter: 2014Q4

REPORT INFORMATION
  Report Type: Spontaneous
  Country: IT (occurrence: IT)
  Receive Date: 20141023
  Receipt Date: 20141023
  Transmission Date: 20150529
  Serious: Yes (Hospitalization, Other)
  Sender: FDA-Public Use
  Company Number: IT-GLAXOSMITHKLINE-IT2014GSK011266

PATIENT
  Age: 59 Year
  Sex: Female

DRUGS (1)
  1. PAZOPANIB [Suspect]
     Active Substance: PAZOPANIB
     Indication: PRODUCT USED FOR UNKNOWN INDICATION
     Dosage: UNK
     Route: 065
     Dates: start: 201301

REACTIONS (14)
  - Renal cell carcinoma [Unknown]
  - Diaphragmatic hernia [Unknown]
  - Cardiac ventricular thrombosis [Recovered/Resolved]
  - Restlessness [Unknown]
  - Abdominal pain upper [Unknown]
  - Hypertension [Unknown]
  - Oedema [Unknown]
  - Vomiting [Unknown]
  - Hyperhidrosis [Unknown]
  - Electrocardiogram ST segment elevation [Recovered/Resolved]
  - Inflammation [Unknown]
  - Stress cardiomyopathy [Unknown]
  - Paraneoplastic syndrome [Unknown]
  - Left ventricular dysfunction [Recovered/Resolved]
